FAERS Safety Report 5284644-3 (Version None)
Quarter: 2007Q2

REPORT INFORMATION
  Report Type: 
  Country: None (occurrence: None)
  Receive Date: 20070403
  Receipt Date: 20070322
  Transmission Date: 20071010
  Serious: Yes (Death, Hospitalization)
  Sender: FDA-Public Use
  Company Number: GB-ROCHE-482844

PATIENT
  Age: 66 Year
  Sex: Male
  Weight: 99.2 kg

DRUGS (11)
  1. XENICAL [Suspect]
     Indication: WEIGHT CONTROL
     Route: 048
     Dates: start: 20060816
  2. NOVOMIX 30 [Concomitant]
     Dosage: 12 UNITS AM, 20 UNITS PM.
     Route: 058
  3. ASPIRIN [Concomitant]
     Route: 048
  4. ATORVASTATIN CALCIUM [Concomitant]
     Route: 048
  5. PREGABALIN [Concomitant]
  6. LISINOPRIL [Concomitant]
  7. VERAPAMIL [Concomitant]
  8. ISMO [Concomitant]
  9. LANSOPRAZOLE [Concomitant]
  10. DOXAZOSIN MESYLATE [Concomitant]
  11. METFORMIN [Concomitant]

REACTIONS (2)
  - HYPOGLYCAEMIA [None]
  - RENAL FAILURE ACUTE [None]
